FAERS Safety Report 6747845-0 (Version None)
Quarter: 2010Q2

REPORT INFORMATION
  Report Type: 
  Country: None (occurrence: None)
  Receive Date: 20100528
  Receipt Date: 20100521
  Transmission Date: 20101027
  Serious: Yes (Other)
  Sender: FDA-Public Use
  Company Number: US-JNJCH-2010012568

PATIENT
  Age: 62 Year
  Sex: Female

DRUGS (1)
  1. LISTERINE TOTAL CARE ANTICAVITY MOUTHWASH [Suspect]
     Indication: DRUG USE FOR UNKNOWN INDICATION
     Dosage: TEXT:A THIRD OF A CAPFUL TWICE
     Route: 048
     Dates: start: 20100516, end: 20100521

REACTIONS (2)
  - APPLICATION SITE BLEEDING [None]
  - APPLICATION SITE BURN [None]
